FAERS Safety Report 7083564-1 (Version None)
Quarter: 2010Q4

REPORT INFORMATION
  Report Type: 
  Country: None (occurrence: None)
  Receive Date: 20101104
  Receipt Date: 20101026
  Transmission Date: 20110411
  Serious: Yes (Death)
  Sender: FDA-Public Use
  Company Number: JP-ROCHE-737155

PATIENT
  Sex: Female
  Weight: 40 kg

DRUGS (4)
  1. AVASTIN [Suspect]
     Indication: COLON CANCER METASTATIC
     Route: 041
     Dates: start: 20100526, end: 20100831
  2. ELPLAT [Suspect]
     Indication: COLON CANCER METASTATIC
     Route: 041
     Dates: start: 20100428, end: 20100831
  3. FLUOROURACIL [Concomitant]
     Dosage: DOSAGE WAS UNCERTAIN.
     Route: 041
  4. CALCIUM LEVOFOLINATE [Concomitant]
     Dosage: DOSAGE WAS UNCERTAIN.
     Route: 041

REACTIONS (2)
  - INTERSTITIAL LUNG DISEASE [None]
  - RESPIRATORY FAILURE [None]
